FAERS Safety Report 25301342 (Version 4)
Quarter: 2025Q3

REPORT INFORMATION
  Report Type: Spontaneous
  Country: GB (occurrence: GB)
  Receive Date: 20250512
  Receipt Date: 20250710
  Transmission Date: 20251020
  Serious: Yes (Hospitalization, Other)
  Sender: PFIZER
  Company Number: GB-PFIZER INC-PV202400140179

PATIENT
  Age: 72 Year
  Sex: Female

DRUGS (1)
  1. GENOTROPIN [Suspect]
     Active Substance: SOMATROPIN
     Indication: Hyperpituitarism
     Dosage: 0.3 MG, 1X/DAY
     Route: 058
     Dates: end: 202409

REACTIONS (9)
  - Fall [Recovering/Resolving]
  - Lower limb fracture [Unknown]
  - Renal failure [Not Recovered/Not Resolved]
  - Arthritis [Unknown]
  - Feeding disorder [Unknown]
  - Asthenia [Unknown]
  - Chronic obstructive pulmonary disease [Unknown]
  - Dyspnoea [Unknown]
  - Off label use [Unknown]

NARRATIVE: CASE EVENT DATE: 20240901
